FAERS Safety Report 4602951-1 (Version None)
Quarter: 2005Q1

REPORT INFORMATION
  Report Type: 
  Country: None (occurrence: None)
  Receive Date: 20050307
  Receipt Date: 20050218
  Transmission Date: 20050727
  Serious: Yes (Hospitalization, Other)
  Sender: FDA-Public Use
  Company Number: JP-2005-001619

PATIENT
  Age: 32 Year
  Sex: Female

DRUGS (5)
  1. BETASERON [Suspect]
     Indication: RELAPSING-REMITTING MULTIPLE SCLEROSIS
     Dosage: 8 MIU, EVERY 2 D, SUBCUTANEOUS
     Route: 058
     Dates: start: 20040607, end: 20050128
  2. CALONAL [Concomitant]
  3. LEVOFLOXACIN [Concomitant]
  4. LOXONIN (LOXOPROFEN SODIUM) [Concomitant]
  5. FLOMOX (CEFCAPENE PIVOXIL HYDROCHLORIDE) [Concomitant]

REACTIONS (6)
  - BLOOD PRESSURE INCREASED [None]
  - INJECTION SITE ABSCESS [None]
  - MENINGITIS ASEPTIC [None]
  - NASOPHARYNGITIS [None]
  - NEPHROTIC SYNDROME [None]
  - PLEURAL EFFUSION [None]
